FAERS Safety Report 8556837-0 (Version None)
Quarter: 2012Q3

REPORT INFORMATION
  Report Type: 
  Country: None (occurrence: None)
  Receive Date: 20120801
  Receipt Date: 20120727
  Transmission Date: 20120928
  Serious: Yes (Death, Hospitalization)
  Sender: FDA-Public Use
  Company Number: JP-ACTELION-A-CH2011-56207

PATIENT
  Age: 25 Year
  Sex: Male
  Weight: 45.5 kg

DRUGS (26)
  1. MIGLUSTAT [Suspect]
     Dosage: 100 MG, TID
     Route: 048
     Dates: start: 20111024, end: 20111030
  2. TEGRETOL [Concomitant]
  3. ARTANE [Concomitant]
  4. MIGLUSTAT [Suspect]
     Dosage: 400 MG, QD
     Route: 048
     Dates: start: 20110609, end: 20110909
  5. MIGLUSTAT [Suspect]
     Dosage: 400 MG, QD
     Route: 048
     Dates: start: 20110513, end: 20110523
  6. PARLODEL [Concomitant]
  7. LOPERAMIDE HYDROCHLORIDE [Concomitant]
  8. MIGLUSTAT [Suspect]
     Indication: NIEMANN-PICK DISEASE
     Dosage: 150 MG, TID
     Route: 048
     Dates: start: 20120304, end: 20120606
  9. MIGLUSTAT [Suspect]
     Dosage: 150 MG, BID
     Route: 048
     Dates: start: 20110524, end: 20110608
  10. MIGLUSTAT [Suspect]
     Dosage: 400 MG, QD
     Route: 048
     Dates: start: 20111031, end: 20111222
  11. LAMICTAL [Concomitant]
  12. LEVOTHYROXINE SODIUM [Concomitant]
  13. BIO-THREE [Concomitant]
  14. MIGLUSTAT [Suspect]
     Dosage: 400 MG, QD
     Route: 048
     Dates: start: 20110407, end: 20110414
  15. MIGLUSTAT [Suspect]
     Dosage: 450 MG, TID
     Route: 048
     Dates: start: 20110415, end: 20110419
  16. MIGLUSTAT [Suspect]
     Dosage: 500 MG, QD
     Route: 048
     Dates: start: 20110420, end: 20110425
  17. MIGLUSTAT [Suspect]
     Dosage: 500 MG, QD
     Route: 048
     Dates: start: 20111223, end: 20120126
  18. PHENYTOIN [Concomitant]
  19. MIYA BM [Concomitant]
  20. MIGLUSTAT [Suspect]
     Dosage: 200 MG, TID
     Route: 048
     Dates: start: 20110426, end: 20110512
  21. MIGLUSTAT [Suspect]
     Dosage: 100 MG, TID
     Route: 048
     Dates: start: 20120301, end: 20120303
  22. CYANOCOBALAMIN [Concomitant]
  23. MIGLUSTAT [Suspect]
     Dosage: 100 MG, TID
     Route: 048
     Dates: start: 20110210, end: 20110406
  24. MIGLUSTAT [Suspect]
     Dosage: 500 MG, QD
     Route: 048
     Dates: start: 20110910, end: 20111013
  25. MIGLUSTAT [Suspect]
     Dosage: 150 MG, TID
     Route: 048
     Dates: start: 20120127, end: 20120214
  26. DANTRIUM [Concomitant]

REACTIONS (10)
  - PYREXIA [None]
  - PNEUMONIA [None]
  - RHINORRHOEA [None]
  - COUGH [None]
  - INCREASED UPPER AIRWAY SECRETION [None]
  - INTERSTITIAL LUNG DISEASE [None]
  - RESPIRATORY FAILURE [None]
  - INFECTION [None]
  - NIEMANN-PICK DISEASE [None]
  - CONDITION AGGRAVATED [None]
